FAERS Safety Report 5278896-3 (Version None)
Quarter: 2007Q1

REPORT INFORMATION
  Report Type: 
  Country: None (occurrence: None)
  Receive Date: 20070328
  Receipt Date: 20070314
  Transmission Date: 20070707
  Serious: Yes (Death)
  Sender: FDA-Public Use
  Company Number: GB-ELI_LILLY_AND_COMPANY-GB200702002589

PATIENT
  Age: 45 Year
  Sex: Male

DRUGS (5)
  1. ZYPREXA [Suspect]
     Dosage: 20 MG, DAILY (1/D)
  2. AMISULPRIDE [Concomitant]
     Dosage: 200 MG, DAILY (1/D)
     Route: 048
  3. AMLODIPINE [Concomitant]
     Dosage: 5 MG, DAILY (1/D)
     Route: 048
  4. CLOZAPINE [Concomitant]
     Dosage: 125 MG, DAILY (1/D)
     Route: 048
  5. DIAZEPAM [Concomitant]
     Dosage: 5 MG, UNK
     Route: 048

REACTIONS (2)
  - DEATH [None]
  - NEUROLEPTIC MALIGNANT SYNDROME [None]
